FAERS Safety Report 21966876 (Version 2)
Quarter: 2023Q1

REPORT INFORMATION
  Report Type: Spontaneous
  Country: US (occurrence: None)
  Receive Date: 20230208
  Receipt Date: 20230323
  Transmission Date: 20230418
  Serious: Yes (Other)
  Sender: FDA-Public Use
  Company Number: US-ROCHE-3275722

PATIENT
  Sex: Male
  Weight: 65.830 kg

DRUGS (10)
  1. OCREVUS [Suspect]
     Active Substance: OCRELIZUMAB
     Indication: Multiple sclerosis
     Dosage: NEXT INFUSION ON 25/JAN/2023, 27/JAN/2023
     Route: 042
     Dates: start: 202206
  2. AMLODIPINE [Concomitant]
     Active Substance: AMLODIPINE BESYLATE
     Indication: Blood pressure measurement
     Route: 048
     Dates: start: 2000
  3. LYRICA [Concomitant]
     Active Substance: PREGABALIN
     Indication: Hypoaesthesia
     Route: 048
     Dates: start: 2000
  4. LYRICA [Concomitant]
     Active Substance: PREGABALIN
     Indication: Paraesthesia
  5. KLONOPIN [Concomitant]
     Active Substance: CLONAZEPAM
     Indication: Muscle spasms
     Route: 048
     Dates: start: 2000
  6. TIZANIDINE [Concomitant]
     Active Substance: TIZANIDINE
     Indication: Muscle spasms
     Route: 048
     Dates: start: 2000
  7. TAMSULOSIN [Concomitant]
     Active Substance: TAMSULOSIN
     Indication: Prostatomegaly
     Route: 048
     Dates: start: 2000
  8. CEPHALEXIN [Concomitant]
     Active Substance: CEPHALEXIN
     Indication: Infection
     Route: 048
     Dates: start: 20230127
  9. NAPROXEN [Concomitant]
     Active Substance: NAPROXEN
     Indication: Pain
     Route: 048
     Dates: start: 20230127
  10. MUPIROCIN [Concomitant]
     Active Substance: MUPIROCIN
     Indication: Infection
     Route: 061
     Dates: start: 20230127

REACTIONS (6)
  - Electric shock sensation [Recovered/Resolved]
  - Localised infection [Not Recovered/Not Resolved]
  - Flushing [Recovered/Resolved]
  - Hypertension [Recovered/Resolved]
  - Fall [Unknown]
  - Hypoaesthesia [Recovered/Resolved]

NARRATIVE: CASE EVENT DATE: 20220601
